FAERS Safety Report 24549319 (Version 1)
Quarter: 2024Q4

REPORT INFORMATION
  Report Type: Other
  Country: CN (occurrence: CN)
  Receive Date: 20241025
  Receipt Date: 20241025
  Transmission Date: 20250114
  Serious: Yes (Other)
  Sender: B BRAUN
  Company Number: CN-B.Braun Medical Inc.-2163821

PATIENT
  Age: 32 Year
  Sex: Female

DRUGS (4)
  1. LIDOCAINE HYDROCHLORIDE [Suspect]
     Active Substance: LIDOCAINE HYDROCHLORIDE
     Indication: Epidural anaesthesia
  2. ROPIVACAINE. [Suspect]
     Active Substance: ROPIVACAINE HYDROCHLORIDE
  3. SODIUM CHLORIDE [Concomitant]
     Active Substance: SODIUM CHLORIDE
  4. SUFENTANIL [Concomitant]
     Active Substance: SUFENTANIL

REACTIONS (7)
  - Headache [Recovered/Resolved]
  - Maternal exposure during delivery [Recovered/Resolved]
  - Inappropriate schedule of product administration [Recovered/Resolved]
  - Cerebral hypoperfusion [Recovered/Resolved]
  - Intracranial pressure increased [Recovered/Resolved]
  - CSF pressure increased [Recovered/Resolved]
  - Loss of consciousness [Recovered/Resolved]
